FAERS Safety Report 6293188-1 (Version None)
Quarter: 2009Q3

REPORT INFORMATION
  Report Type: 
  Country: None (occurrence: None)
  Receive Date: 20090731
  Receipt Date: 20090729
  Transmission Date: 20100115
  Serious: No
  Sender: FDA-Public Use
  Company Number: JP-EISAI INC.-E2090-00805-SPO-JP

PATIENT
  Age: 65 Year
  Sex: Female

DRUGS (6)
  1. EXCEGRAN [Suspect]
     Indication: EPILEPSY
     Route: 048
  2. TAKEPRON [Concomitant]
  3. NORVASC [Concomitant]
  4. MUCOSTA [Concomitant]
     Dosage: UNKNOWN
  5. PANTOSIN [Concomitant]
     Dosage: UNKNOWN
  6. SERMION [Concomitant]
     Dosage: UNKNOWN

REACTIONS (1)
  - NEPHROLITHIASIS [None]
